FAERS Safety Report 5085047-7 (Version None)
Quarter: 2006Q3

REPORT INFORMATION
  Report Type: 
  Country: None (occurrence: None)
  Receive Date: 20060815
  Receipt Date: 20060728
  Transmission Date: 20061208
  Serious: Yes (Hospitalization, Other)
  Sender: FDA-Public Use
  Company Number: US200608001521

PATIENT
  Age: 59 Year
  Sex: Male

DRUGS (27)
  1. CIALIS [Suspect]
  2. BACLOFEN [Concomitant]
  3. KLONOPIN [Concomitant]
  4. AMBIEN [Concomitant]
  5. LEXAPRO [Concomitant]
  6. LORATADINE [Concomitant]
  7. MS CONTIN [Concomitant]
  8. NEURONTIN [Concomitant]
  9. NORTRIPTYLINE HCL [Concomitant]
  10. XANAX [Concomitant]
  11. DDAVP [Concomitant]
  12. FLOMAX [Concomitant]
  13. FOLATE SODIUM [Concomitant]
  14. FOSAMAX [Concomitant]
  15. GLUCOPHAGE [Concomitant]
  16. METHOTREXATE [Concomitant]
  17. MIRALAX [Concomitant]
  18. NASONEX [Concomitant]
  19. TRICOR [Concomitant]
  20. URECHOLINE [Concomitant]
  21. ATROVENT [Concomitant]
  22. ASPIRIN [Concomitant]
  23. ADVAIR DISKUS 100/50 [Concomitant]
  24. MAXALT [Concomitant]
  25. TUMS (CALCIUM CARBONATE) [Concomitant]
  26. NITROSTAT [Concomitant]
  27. ZOFRAN [Concomitant]

REACTIONS (5)
  - COGNITIVE DISORDER [None]
  - FALL [None]
  - METABOLIC ENCEPHALOPATHY [None]
  - TIBIA FRACTURE [None]
  - TOXIC INDUCED ENCEPHALOPATHY [None]
